FAERS Safety Report 21842203 (Version 1)
Quarter: 2023Q1

REPORT INFORMATION
  Report Type: Spontaneous
  Country: US (occurrence: US)
  Receive Date: 20230110
  Receipt Date: 20230110
  Transmission Date: 20230417
  Serious: Yes (Other)
  Sender: FDA-Public Use
  Company Number: US-STRIDES ARCOLAB LIMITED-2022SP012610

PATIENT
  Sex: Male

DRUGS (13)
  1. DEXAMETHASONE [Suspect]
     Active Substance: DEXAMETHASONE
     Indication: B precursor type acute leukaemia
     Dosage: UNK, (HYPERCVAD REGIMEN)
     Route: 065
  2. DEXAMETHASONE [Suspect]
     Active Substance: DEXAMETHASONE
     Dosage: UNK, (CVD REGIMEN; IN A COMBINATION WITH VENETOCLAX)
     Route: 065
  3. DOXORUBICIN [Suspect]
     Active Substance: DOXORUBICIN
     Indication: B precursor type acute leukaemia
     Dosage: UNK, (HYPERCVAD REGIMEN)
     Route: 065
  4. METHOTREXATE [Suspect]
     Active Substance: METHOTREXATE
     Indication: B precursor type acute leukaemia
     Dosage: UNK, (HYPERCVAD REGIMEN)
     Route: 065
  5. CYCLOPHOSPHAMIDE [Suspect]
     Active Substance: CYCLOPHOSPHAMIDE
     Indication: B precursor type acute leukaemia
     Dosage: UNK, (HYPER-FRACTIONATED DOSE; HYPERCVAD REGIMEN)
     Route: 065
  6. CYCLOPHOSPHAMIDE [Suspect]
     Active Substance: CYCLOPHOSPHAMIDE
     Dosage: UNK, (CVD REGIMEN; IN A COMBINATION WITH VENETOCLAX)
     Route: 065
  7. VINCRISTINE [Suspect]
     Active Substance: VINCRISTINE
     Indication: B precursor type acute leukaemia
     Dosage: UNK, (HYPERCVAD REGIMEN)
     Route: 065
  8. VINCRISTINE [Suspect]
     Active Substance: VINCRISTINE
     Dosage: UNK, (CVD REGIMEN; IN A COMBINATION WITH VENETOCLAX)
     Route: 065
  9. CYTARABINE [Suspect]
     Active Substance: CYTARABINE
     Indication: B precursor type acute leukaemia
     Dosage: UNK, (HYPERCVAD REGIMEN)
     Route: 065
  10. DECITABINE [Suspect]
     Active Substance: DECITABINE
     Indication: B precursor type acute leukaemia
     Dosage: UNK
     Route: 065
  11. KYMRIAH [Suspect]
     Active Substance: TISAGENLECLEUCEL
     Indication: B precursor type acute leukaemia
     Dosage: UNK
     Route: 065
  12. VENETOCLAX [Suspect]
     Active Substance: VENETOCLAX
     Indication: B precursor type acute leukaemia
     Dosage: 100 MILLIGRAM/DAY
     Route: 065
  13. VORICONAZOLE [Concomitant]
     Active Substance: VORICONAZOLE
     Indication: Product used for unknown indication
     Dosage: UNK
     Route: 065

REACTIONS (1)
  - Drug ineffective [Unknown]
